FAERS Safety Report 5412528-6 (Version None)
Quarter: 2007Q3

REPORT INFORMATION
  Report Type: 
  Country: None (occurrence: None)
  Receive Date: 20070813
  Receipt Date: 20070810
  Transmission Date: 20080115
  Serious: Yes (Hospitalization)
  Sender: FDA-Public Use
  Company Number: B0449423A

PATIENT
  Age: 17 Year
  Sex: Male
  Weight: 55 kg

DRUGS (4)
  1. LAMICTAL [Suspect]
     Indication: EPILEPSY
     Route: 048
     Dates: start: 20061024
  2. ALEVIATIN [Suspect]
     Indication: EPILEPSY
     Route: 048
     Dates: start: 19960220
  3. DEPAKENE [Concomitant]
     Indication: EPILEPSY
     Dosage: 600MG PER DAY
     Route: 048
     Dates: start: 19920312
  4. UNKNOWN DRUG [Concomitant]
     Indication: EPILEPSY
     Route: 048
     Dates: start: 19980626

REACTIONS (5)
  - DIPLOPIA [None]
  - DIZZINESS [None]
  - DYSLALIA [None]
  - SOMNOLENCE [None]
  - THERAPEUTIC AGENT TOXICITY [None]
